FAERS Safety Report 5609029-9 (Version None)
Quarter: 2008Q1

REPORT INFORMATION
  Report Type: 
  Country: None (occurrence: None)
  Receive Date: 20080131
  Receipt Date: 20080116
  Transmission Date: 20080703
  Serious: Yes (Hospitalization)
  Sender: FDA-Public Use
  Company Number: GB-AMGEN-UK252804

PATIENT
  Sex: Male
  Weight: 104 kg

DRUGS (2)
  1. ARANESP [Suspect]
     Indication: RENAL FAILURE CHRONIC
     Route: 042
     Dates: start: 20060123, end: 20070713
  2. TACROLIMUS [Suspect]
     Route: 048
     Dates: start: 20070701, end: 20080111

REACTIONS (1)
  - APLASIA PURE RED CELL [None]
